FAERS Safety Report 11919692 (Version 1)
Quarter: 2016Q1

REPORT INFORMATION
  Report Type: Spontaneous
  Country: US (occurrence: US)
  Receive Date: 20160115
  Receipt Date: 20160115
  Transmission Date: 20160526
  Serious: No
  Sender: FDA-Public Use
  Company Number: US-BAYER-2016-008152

PATIENT
  Age: 90 Year
  Sex: Female
  Weight: 57.6 kg

DRUGS (5)
  1. MAGNESIUM [Concomitant]
     Active Substance: MAGNESIUM
  2. MIRALAX [Suspect]
     Active Substance: POLYETHYLENE GLYCOL 3350
     Dosage: UNK TEASPOON, QD
     Route: 048
     Dates: start: 2015
  3. VITAMIN C [Concomitant]
     Active Substance: ASCORBIC ACID
  4. CENTRUM [Concomitant]
     Active Substance: VITAMINS
  5. OMEGA-3 [DOCOSAHEXANOIC ACID,EICOSAPENTAENOIC ACID] [Concomitant]

REACTIONS (2)
  - Flatulence [None]
  - Product use issue [None]
